FAERS Safety Report 4674934-7 (Version None)
Quarter: 2005Q2

REPORT INFORMATION
  Report Type: 
  Country: None (occurrence: None)
  Receive Date: 20050526
  Receipt Date: 20050517
  Transmission Date: 20051028
  Serious: Yes (Other)
  Sender: FDA-Public Use
  Company Number: 2005-0008317

PATIENT
  Age: 32 Year
  Sex: Male
  Weight: 73.392 kg

DRUGS (3)
  1. TRUVADA [Suspect]
     Indication: HIV INFECTION
     Dosage: 1 DOSAGE FORMS, 1 IN 1 D, ORAL
     Route: 048
     Dates: start: 20050401, end: 20050503
  2. EFAVIRENZ (EFAVIRENZ) [Concomitant]
  3. MULTIVITAMIN [Concomitant]

REACTIONS (3)
  - HEADACHE [None]
  - NEUTROPENIA [None]
  - PHARYNGITIS [None]
